FAERS Safety Report 7443483-5 (Version None)
Quarter: 2011Q2

REPORT INFORMATION
  Report Type: 
  Country: None (occurrence: None)
  Receive Date: 20110428
  Receipt Date: 20110426
  Transmission Date: 20111010
  Serious: Yes (Other)
  Sender: FDA-Public Use
  Company Number: BR-PFIZER INC-2011089413

PATIENT
  Age: 34 Year
  Sex: Female
  Weight: 53 kg

DRUGS (4)
  1. SYMBICORT [Concomitant]
     Indication: ASTHMA
     Dosage: UNK
     Dates: start: 20110309
  2. NIQUITIN [Concomitant]
     Indication: SMOKING CESSATION THERAPY
     Dosage: UNK
     Dates: start: 20110301
  3. CHAMPIX [Suspect]
     Indication: SMOKING CESSATION THERAPY
  4. CHAMPIX [Suspect]
     Indication: TOBACCO USER
     Dosage: 0.5 MG, 1X/DAY
     Route: 048
     Dates: start: 20110401

REACTIONS (8)
  - INSOMNIA [None]
  - GROIN PAIN [None]
  - NAUSEA [None]
  - ABDOMINAL PAIN [None]
  - CONSTIPATION [None]
  - SWELLING [None]
  - MIGRAINE [None]
  - ABDOMINAL DISCOMFORT [None]
